FAERS Safety Report 11659215 (Version 2)
Quarter: 2015Q4

REPORT INFORMATION
  Report Type: Spontaneous
  Country: US (occurrence: US)
  Receive Date: 20151026
  Receipt Date: 20151027
  Transmission Date: 20160304
  Serious: No
  Sender: FDA-Public Use
  Company Number: US-PFIZER INC-2015352195

PATIENT
  Sex: Male
  Weight: 98 kg

DRUGS (8)
  1. CHLORDIAZEPOXIDE HYDROCHLORIDE, CLIDINIUM BROMIDE [Concomitant]
     Indication: IRRITABLE BOWEL SYNDROME
     Dosage: ONE TO TWO TABLETS ONCE A DAY ; TAKES ONE IN THE EVENING AND ONE IN THE MORNING
  2. OXYCODONE/ACETAMINOPHEN [Suspect]
     Active Substance: ACETAMINOPHEN\OXYCODONE HYDROCHLORIDE
     Indication: PAIN
     Dosage: [ACETAMINOPHEN 325MG]/[ OXYCODONE HYDROCHLORIDE 5MG]
     Dates: end: 20151015
  3. CORTISONE [Suspect]
     Active Substance: CORTISONE\HYDROCORTISONE
     Dosage: UNK
     Dates: start: 20151015
  4. LANSOPRAZOLE. [Concomitant]
     Active Substance: LANSOPRAZOLE
     Indication: GASTROOESOPHAGEAL REFLUX DISEASE
     Dosage: 30 MG, 1X/DAY
  5. METOPROLOL SUCCINATE. [Concomitant]
     Active Substance: METOPROLOL SUCCINATE
     Dosage: 25 MG, 1X/DAY
  6. TAMSULOSIN HCL [Concomitant]
     Active Substance: TAMSULOSIN
     Indication: MICTURITION DISORDER
     Dosage: 0.4 MG, 1X/DAY
  7. HYOSCYAMINE. [Concomitant]
     Active Substance: HYOSCYAMINE
     Indication: IRRITABLE BOWEL SYNDROME
     Dosage: 0.125 MG, TAKING IT BEFORE FOOD OR EVERY 4 HOURS AS NEEDED
  8. LYRICA [Suspect]
     Active Substance: PREGABALIN
     Indication: SPINAL DISORDER
     Dosage: 75MG CAPSULES, TWO CAPSULES BY MOUTH TWICE A DAY
     Route: 048

REACTIONS (6)
  - Pain in extremity [Unknown]
  - Therapeutic response unexpected [Unknown]
  - Somnolence [Unknown]
  - Dry mouth [Unknown]
  - Drug effect incomplete [Unknown]
  - Pre-existing condition improved [Unknown]
